FAERS Safety Report 13933217 (Version 4)
Quarter: 2019Q2

REPORT INFORMATION
  Report Type: Report from Study
  Country: CA (occurrence: CA)
  Receive Date: 20170904
  Receipt Date: 20190617
  Transmission Date: 20190711
  Serious: Yes (Other)
  Sender: FDA-Public Use
  Company Number: CA-BRISTOL-MYERS SQUIBB COMPANY-BMS-2017-040502

PATIENT
  Sex: Female

DRUGS (1)
  1. ABATACEPT [Suspect]
     Active Substance: ABATACEPT
     Indication: RHEUMATOID ARTHRITIS
     Dosage: 750 MG, Q4WK
     Route: 042
     Dates: start: 20140915

REACTIONS (6)
  - Urinary tract infection [Recovering/Resolving]
  - Cystitis [Unknown]
  - Arthropathy [Unknown]
  - Back disorder [Unknown]
  - Pain [Unknown]
  - Spinal stenosis [Unknown]
